FAERS Safety Report 11829861 (Version 1)
Quarter: 2015Q4

REPORT INFORMATION
  Report Type: Spontaneous
  Country: US (occurrence: US)
  Receive Date: 20151212
  Receipt Date: 20151212
  Transmission Date: 20160305
  Serious: No
  Sender: FDA-Public Use
  Company Number: US-BAUSCH-BL-2015-020923

PATIENT
  Age: 69 Year
  Sex: Female

DRUGS (2)
  1. LUMIGAN [Concomitant]
     Active Substance: BIMATOPROST
     Indication: PRODUCT USED FOR UNKNOWN INDICATION
     Route: 047
  2. TIMOPTIC-XE [Suspect]
     Active Substance: TIMOLOL MALEATE
     Indication: PRODUCT USED FOR UNKNOWN INDICATION
     Dosage: IN EACH EYE IN THE MORNING
     Route: 047
     Dates: start: 201503, end: 20150824

REACTIONS (2)
  - Eye paraesthesia [None]
  - Paraesthesia [Recovering/Resolving]

NARRATIVE: CASE EVENT DATE: 2015
